FAERS Safety Report 23749436 (Version 2)
Quarter: 2024Q2

REPORT INFORMATION
  Report Type: Report from Study
  Country: US (occurrence: US)
  Receive Date: 20240416
  Receipt Date: 20240506
  Transmission Date: 20240716
  Serious: Yes (Hospitalization, Other)
  Sender: FDA-Public Use
  Company Number: US-JAZZ PHARMACEUTICALS-2024-US-006121

PATIENT
  Sex: Female

DRUGS (1)
  1. EPIDIOLEX [Suspect]
     Active Substance: CANNABIDIOL
     Indication: Epilepsy
     Dosage: 0.6 ML FOR 1 WEEK,THEN 1.2 ML FOR 1 WK, 1.8 ML FOR 1 WK, 2.4 ML FOR 1 WK VIA GTUBE 2 TIMES A DAY
     Dates: start: 202403

REACTIONS (2)
  - Respiratory distress [Unknown]
  - Oxygen saturation decreased [Unknown]
